FAERS Safety Report 18379481 (Version 3)
Quarter: 2020Q4

REPORT INFORMATION
  Report Type: Spontaneous
  Country: US (occurrence: US)
  Receive Date: 20201013
  Receipt Date: 20201119
  Transmission Date: 20210114
  Serious: No
  Sender: FDA-Public Use
  Company Number: US-LEXICON PHARMACEUTICALS, INC-20-1606-00789

PATIENT
  Age: 50 Year
  Sex: Female

DRUGS (3)
  1. XERMELO [Suspect]
     Active Substance: TELOTRISTAT ETHYL
     Indication: CARCINOID SYNDROME
     Dosage: NOT REPORTED
     Dates: start: 202003
  2. XERMELO [Suspect]
     Active Substance: TELOTRISTAT ETHYL
     Dates: start: 20200904
  3. SANDOSTATIN LAR DEPOT [Concomitant]
     Active Substance: OCTREOTIDE ACETATE

REACTIONS (7)
  - Diarrhoea [Unknown]
  - Flushing [Recovered/Resolved]
  - Abdominal pain [Not Recovered/Not Resolved]
  - Abdominal distension [Recovering/Resolving]
  - Abdominal pain [Recovered/Resolved]
  - Frequent bowel movements [Unknown]
  - Fatigue [Not Recovered/Not Resolved]
